FAERS Safety Report 5674717-5 (Version None)
Quarter: 2008Q1

REPORT INFORMATION
  Report Type: 
  Country: None (occurrence: None)
  Receive Date: 20080320
  Receipt Date: 20080318
  Transmission Date: 20080703
  Serious: Yes (Hospitalization)
  Sender: FDA-Public Use
  Company Number: D0056560A

PATIENT
  Age: 64 Year
  Sex: Female

DRUGS (2)
  1. REQUIP [Suspect]
     Indication: PARKINSON'S DISEASE
     Route: 048
  2. MADOPAR [Concomitant]
     Route: 065

REACTIONS (11)
  - CONSTIPATION [None]
  - DEPRESSION [None]
  - HYPERHIDROSIS [None]
  - INITIAL INSOMNIA [None]
  - MICTURITION URGENCY [None]
  - OEDEMA PERIPHERAL [None]
  - PAIN IN EXTREMITY [None]
  - PATHOLOGICAL GAMBLING [None]
  - RESTLESSNESS [None]
  - SALIVARY HYPERSECRETION [None]
  - THINKING ABNORMAL [None]
